FAERS Safety Report 7549750-9 (Version None)
Quarter: 2011Q2

REPORT INFORMATION
  Report Type: 
  Country: None (occurrence: None)
  Receive Date: 20110615
  Receipt Date: 20061215
  Transmission Date: 20111010
  Serious: Yes (Other)
  Sender: FDA-Public Use
  Company Number: PHFR2006GB03538

PATIENT
  Sex: Male

DRUGS (1)
  1. CLOZAPINE [Suspect]
     Indication: SCHIZOPHRENIA
     Dosage: 500 MG/DAY
     Route: 048
     Dates: start: 20061019, end: 20061129

REACTIONS (8)
  - VOMITING [None]
  - TACHYCARDIA [None]
  - BODY TEMPERATURE INCREASED [None]
  - VIRAL INFECTION [None]
  - HEADACHE [None]
  - PHOTOPHOBIA [None]
  - WHITE BLOOD CELL COUNT INCREASED [None]
  - MUSCULOSKELETAL STIFFNESS [None]
